FAERS Safety Report 12088396 (Version 1)
Quarter: 2016Q1

REPORT INFORMATION
  Report Type: Report from Study
  Country: US (occurrence: US)
  Receive Date: 20160218
  Receipt Date: 20160218
  Transmission Date: 20160526
  Serious: No
  Sender: FDA-Public Use
  Company Number: US-AMGEN-USASL2016016636

PATIENT
  Age: 48 Year
  Sex: Female

DRUGS (1)
  1. ENBREL [Suspect]
     Active Substance: ETANERCEPT
     Indication: ANKYLOSING SPONDYLITIS
     Dosage: 50 MG, QWK
     Route: 065

REACTIONS (9)
  - Contusion [Unknown]
  - Nasopharyngitis [Not Recovered/Not Resolved]
  - Hot flush [Unknown]
  - Bone pain [Unknown]
  - Infection [Unknown]
  - Malaise [Unknown]
  - Injection site pain [Unknown]
  - Injection site bruising [Unknown]
  - Peripheral coldness [Unknown]
